FAERS Safety Report 5585649-5 (Version None)
Quarter: 2008Q1

REPORT INFORMATION
  Report Type: 
  Country: None (occurrence: None)
  Receive Date: 20080109
  Receipt Date: 20071231
  Transmission Date: 20080703
  Serious: Yes (Other)
  Sender: FDA-Public Use
  Company Number: GB-AVENTIS-200810107GDDC

PATIENT
  Age: 76 Year
  Sex: Male
  Weight: 67 kg

DRUGS (10)
  1. METRONIDAZOLE [Suspect]
     Indication: DIVERTICULITIS
     Route: 048
     Dates: start: 20071128, end: 20071202
  2. AMOXICILLIN [Concomitant]
     Dates: start: 20041019
  3. CEPHALEXIN [Concomitant]
     Dates: start: 20050818
  4. CIPROFLOXACIN [Concomitant]
     Dates: start: 20071128, end: 20071128
  5. FELODIPINE [Concomitant]
     Dates: start: 20000919
  6. FOLIC ACID [Concomitant]
     Dates: start: 19960208
  7. HYPROMELLOSE [Concomitant]
     Dosage: DOSE: 0.3%
     Route: 047
     Dates: start: 20020501
  8. LATANOPROST [Concomitant]
     Dates: start: 20000804
  9. MAGNESIUM TRISILICATE [Concomitant]
     Dosage: DOSE: UNK
     Dates: start: 20060221
  10. RAMIPRIL [Concomitant]
     Dates: start: 20061011

REACTIONS (2)
  - DISTURBANCE IN ATTENTION [None]
  - DYSGRAPHIA [None]
